FAERS Safety Report 16456088 (Version 3)
Quarter: 2019Q3

REPORT INFORMATION
  Report Type: Spontaneous
  Country: US (occurrence: US)
  Receive Date: 20190620
  Receipt Date: 20190711
  Transmission Date: 20191004
  Serious: Yes (Hospitalization)
  Sender: FDA-Public Use
  Company Number: US-GW PHARMA-201906USGW2010

PATIENT

DRUGS (5)
  1. EPIDIOLEX [Suspect]
     Active Substance: CANNABIDIOL
     Dosage: 1900 MILLIGRAM, QD (1000 MILLIGRAM AM AND 900 MILLIGRAM AT PM)
     Route: 048
     Dates: start: 20190610
  2. EPIDIOLEX [Suspect]
     Active Substance: CANNABIDIOL
     Indication: LENNOX-GASTAUT SYNDROME
     Dosage: 800 MILLIGRAM, BID
     Route: 048
     Dates: start: 20190301, end: 20190520
  3. BANZEL [Concomitant]
     Active Substance: RUFINAMIDE
     Indication: PRODUCT USED FOR UNKNOWN INDICATION
     Dosage: UNK
     Route: 065
  4. KEPPRA [Concomitant]
     Active Substance: LEVETIRACETAM
     Indication: PRODUCT USED FOR UNKNOWN INDICATION
     Dosage: UNK
     Route: 065
  5. EPIDIOLEX [Suspect]
     Active Substance: CANNABIDIOL
     Dosage: 900 MILLIGRAM, BID
     Route: 048
     Dates: start: 20190520, end: 20190610

REACTIONS (7)
  - Vomiting [Unknown]
  - Escherichia infection [Recovered/Resolved]
  - Nausea [Unknown]
  - Abscess [Unknown]
  - Seizure [Unknown]
  - Constipation [Unknown]
  - Perineal pain [Unknown]

NARRATIVE: CASE EVENT DATE: 20190520
